FAERS Safety Report 8483222-2 (Version None)
Quarter: 2012Q3

REPORT INFORMATION
  Report Type: 
  Country: None (occurrence: None)
  Receive Date: 20120702
  Receipt Date: 20120618
  Transmission Date: 20120928
  Serious: Yes (Hospitalization)
  Sender: FDA-Public Use
  Company Number: IT-UCBSA-058296

PATIENT
  Age: 75 Year
  Sex: Male

DRUGS (11)
  1. CARDURA [Concomitant]
     Dosage: 4 MG
     Route: 048
  2. MONOKET [Suspect]
     Indication: ANGINA PECTORIS
     Dosage: DAILY DOSE: 40MG
     Route: 048
     Dates: start: 20120518, end: 20120520
  3. VALSARTAN  AND HYDROCHLOROTHIAZIDE [Concomitant]
     Dosage: 1 DF DAILY
     Route: 048
  4. CATAPRES-TTS-1 [Concomitant]
  5. LUBIVON [Concomitant]
  6. HUMALOG [Concomitant]
  7. ATORVASTATIN CALCIUM [Concomitant]
  8. LEVOTHYROXINE SODIUM [Concomitant]
  9. IVABRADINE [Suspect]
     Indication: ANGINA PECTORIS
     Dosage: DAILY DOSE: 5MG
     Route: 048
     Dates: start: 20120518, end: 20120520
  10. CARVEDILOL [Suspect]
     Indication: HYPERTENSION
     Dosage: DAILY DOSE:25MG
     Route: 048
     Dates: start: 20120518, end: 20120518
  11. PANTOPRAZOLE [Concomitant]

REACTIONS (2)
  - SYNCOPE [None]
  - SINUS BRADYCARDIA [None]
